FAERS Safety Report 7027567-1 (Version None)
Quarter: 2010Q4

REPORT INFORMATION
  Report Type: 
  Country: None (occurrence: None)
  Receive Date: 20101004
  Receipt Date: 20100923
  Transmission Date: 20110411
  Serious: Yes (Other)
  Sender: FDA-Public Use
  Company Number: US-BAXTER-2010BH023545

PATIENT
  Age: 72 Year
  Sex: Female

DRUGS (3)
  1. DIANEAL [Suspect]
     Indication: PERITONEAL DIALYSIS
     Route: 033
     Dates: start: 20090601, end: 20100901
  2. DIANEAL [Suspect]
     Route: 033
     Dates: start: 20100901
  3. EXTRANEAL [Suspect]
     Indication: PERITONEAL DIALYSIS
     Route: 033
     Dates: start: 20090101, end: 20090101

REACTIONS (3)
  - BREAST CANCER [None]
  - PROCEDURAL PAIN [None]
  - PRURITUS [None]
